FAERS Safety Report 4279224-2 (Version None)
Quarter: 2004Q1

REPORT INFORMATION
  Report Type: 
  Country: None (occurrence: None)
  Receive Date: 20040122
  Receipt Date: 20040108
  Transmission Date: 20041129
  Serious: Yes (Hospitalization)
  Sender: FDA-Public Use
  Company Number: CIP03003385

PATIENT
  Age: 76 Year
  Sex: Female

DRUGS (4)
  1. ACTONEL [Suspect]
     Indication: OSTEOPOROSIS
     Dosage: 2.5 MG DAILY, ORAL
     Route: 048
     Dates: start: 20031015, end: 20031020
  2. ENALAPRIL MALEATE [Concomitant]
  3. MAG-LAX (PARAFFIN, LIQUID, MAGNESIUM HYDROXIDE) [Concomitant]
  4. TINELAC [Concomitant]

REACTIONS (3)
  - DECREASED APPETITE [None]
  - LIVER DISORDER [None]
  - RASH [None]
